FAERS Safety Report 6148663-7 (Version None)
Quarter: 2009Q2

REPORT INFORMATION
  Report Type: 
  Country: None (occurrence: None)
  Receive Date: 20090408
  Receipt Date: 20090406
  Transmission Date: 20091009
  Serious: Yes (Hospitalization)
  Sender: FDA-Public Use
  Company Number: US-ROXANE LABORATORIES, INC.-2009-RO-00346RO

PATIENT
  Sex: Male
  Weight: 73 kg

DRUGS (19)
  1. PREDNISONE TAB [Suspect]
     Indication: PROSTATE CANCER
     Dosage: 10MG
     Route: 048
     Dates: start: 20071213
  2. DOCETAXEL [Suspect]
     Indication: PROSTATE CANCER
     Route: 042
     Dates: start: 20071213, end: 20080306
  3. STUDY DRUG [Suspect]
     Indication: PROSTATE CANCER
     Route: 042
     Dates: start: 20071213, end: 20080306
  4. CELEBREX [Concomitant]
  5. COMPAZINE [Concomitant]
     Dates: start: 20071206
  6. DECADRON [Concomitant]
     Dates: start: 20071206
  7. DETROL LA [Concomitant]
  8. EFFEXOR XR [Concomitant]
  9. SERTACONAZOLE NITRATE [Concomitant]
  10. TAMSULOSIN HYDROCHLORIDE [Concomitant]
  11. FLONASE [Concomitant]
  12. LISINOPRIL [Concomitant]
  13. LUPRON [Concomitant]
  14. PRILOSEC [Concomitant]
  15. PROSCAR [Concomitant]
  16. TRAZODONE [Concomitant]
  17. VICODIN [Concomitant]
  18. ZOFRAN [Concomitant]
  19. ZOMETA [Concomitant]
     Dates: start: 20071030

REACTIONS (5)
  - CEREBRAL DISORDER [None]
  - FATIGUE [None]
  - ISCHAEMIA [None]
  - MENTAL STATUS CHANGES [None]
  - NEUTROPENIA [None]
